FAERS Safety Report 7653652-7 (Version None)
Quarter: 2011Q3

REPORT INFORMATION
  Report Type: 
  Country: None (occurrence: None)
  Receive Date: 20110803
  Receipt Date: 20110728
  Transmission Date: 20111222
  Serious: Yes (Other)
  Sender: FDA-Public Use
  Company Number: US-PFIZER INC-2011141233

PATIENT
  Sex: Female
  Weight: 45.351 kg

DRUGS (5)
  1. XALATAN [Suspect]
     Indication: GLAUCOMA
     Dosage: 1 GTT, DAILY IN EACH EYE
     Route: 047
     Dates: start: 20110504
  2. LUMIGAN [Suspect]
     Dosage: UNK
     Route: 047
  3. ALLEGRA [Concomitant]
     Indication: HYPERSENSITIVITY
     Dosage: 60 MG, ALTERNATE DAY
  4. TIMOLOL MALEATE [Suspect]
     Dosage: UNK
     Route: 047
  5. CALCIUM CARBONATE/COLECALCIFEROL [Concomitant]
     Indication: OSTEOPOROSIS
     Dosage: 500 MG, DAILY

REACTIONS (16)
  - EYE PRURITUS [None]
  - SWOLLEN TONGUE [None]
  - PHARYNGEAL OEDEMA [None]
  - THROAT IRRITATION [None]
  - FLUSHING [None]
  - HYPERAEMIA [None]
  - LIP PRURITUS [None]
  - URTICARIA [None]
  - INSOMNIA [None]
  - OEDEMA MOUTH [None]
  - DEMENTIA [None]
  - OROPHARYNGEAL PAIN [None]
  - SKIN DISORDER [None]
  - NAUSEA [None]
  - ORAL PRURITUS [None]
  - RASH ERYTHEMATOUS [None]
